FAERS Safety Report 8434871-9 (Version None)
Quarter: 2012Q2

REPORT INFORMATION
  Report Type: 
  Country: None (occurrence: None)
  Receive Date: 20120608
  Receipt Date: 20120524
  Transmission Date: 20120825
  Serious: Yes (Life-Threatening, Other)
  Sender: FDA-Public Use
  Company Number: 2012P1033927

PATIENT
  Age: 77 Year
  Sex: Female

DRUGS (17)
  1. CALCIUM CARBONATE [Concomitant]
  2. ASPIRIN [Concomitant]
  3. BISOPROLOL FUMARATE [Concomitant]
  4. ISOSORBIDE MONONITRATE [Concomitant]
  5. LANSOPRAZOLE [Concomitant]
  6. SIMVASTATIM [Concomitant]
  7. DARBEPOETIN ALFA [Concomitant]
  8. CEFTAZIDIME [Suspect]
     Indication: URINARY TRACT INFECTION
     Dosage: 6 GM;QD;IVBOL
     Route: 042
     Dates: start: 20120302, end: 20120507
  9. CEFTAZIDIME [Suspect]
     Indication: PNEUMONIA
     Dosage: 6 GM;QD;IVBOL
     Route: 042
     Dates: start: 20120302, end: 20120507
  10. FUROSUMIDE [Concomitant]
  11. BUPRENORPHINE [Concomitant]
  12. ALFACALCIDOL [Concomitant]
  13. GLICLAZIDE [Concomitant]
  14. THYROXINE SODILIM [Concomitant]
  15. TPN [Concomitant]
  16. SODIUM BICARBONATE [Concomitant]
  17. ACETAMINOPHEN [Concomitant]

REACTIONS (7)
  - UNRESPONSIVE TO STIMULI [None]
  - BLOOD GASES ABNORMAL [None]
  - SOMNOLENCE [None]
  - COMA [None]
  - HAEMODIALYSIS [None]
  - NERVOUS SYSTEM DISORDER [None]
  - CONVULSION [None]
